FAERS Safety Report 24960613 (Version 1)
Quarter: 2025Q1

REPORT INFORMATION
  Report Type: Spontaneous
  Country: DE (occurrence: DE)
  Receive Date: 20250212
  Receipt Date: 20250212
  Transmission Date: 20250408
  Serious: Yes (Hospitalization)
  Sender: PFIZER
  Company Number: None

PATIENT
  Age: 30 Year
  Sex: Female
  Weight: 53 kg

DRUGS (2)
  1. CYTOTEC [Suspect]
     Active Substance: MISOPROSTOL
     Indication: Abortion spontaneous
     Route: 048
     Dates: start: 20250130
  2. CYTOTEC [Suspect]
     Active Substance: MISOPROSTOL
     Indication: Uterine dilation and curettage

REACTIONS (5)
  - Abdominal pain [Recovering/Resolving]
  - Vomiting [Unknown]
  - Gait inability [Unknown]
  - Vaginal haemorrhage [Recovering/Resolving]
  - Off label use [Unknown]

NARRATIVE: CASE EVENT DATE: 20250130
